FAERS Safety Report 10312690 (Version 2)
Quarter: 2014Q3

REPORT INFORMATION
  Report Type: Report from Study
  Country: CA (occurrence: CA)
  Receive Date: 20140718
  Receipt Date: 20140718
  Transmission Date: 20150326
  Serious: Yes (Death, Other)
  Sender: FDA-Public Use
  Company Number: PHHY2014CA003289

PATIENT
  Age: 60 Year
  Sex: Female

DRUGS (3)
  1. SANDOSTATIN LAR DEPOT [Suspect]
     Active Substance: OCTREOTIDE ACETATE
     Indication: NEUROENDOCRINE TUMOUR
     Dosage: 30 MG, EVERY 4 WEEKS
     Route: 030
     Dates: start: 20071004
  2. INTERFERON NOS [Concomitant]
     Active Substance: INTERFERON
     Dosage: UNK UKN, UNK
  3. SANDOSTATIN LAR DEPOT [Suspect]
     Active Substance: OCTREOTIDE ACETATE
     Dosage: 60 MG, ONCE A MONTH
     Route: 030
     Dates: end: 20140627

REACTIONS (11)
  - Pneumonia [Recovering/Resolving]
  - Cough [Recovering/Resolving]
  - Asthenia [Unknown]
  - Death [Fatal]
  - Chills [Unknown]
  - Pallor [Unknown]
  - Decreased appetite [Unknown]
  - Malaise [Unknown]
  - Diarrhoea [Not Recovered/Not Resolved]
  - Productive cough [Recovering/Resolving]
  - Weight increased [Unknown]

NARRATIVE: CASE EVENT DATE: 20131230
